FAERS Safety Report 22948827 (Version 2)
Quarter: 2024Q4

REPORT INFORMATION
  Report Type: Spontaneous
  Country: FR (occurrence: FR)
  Receive Date: 20230915
  Receipt Date: 20241226
  Transmission Date: 20250115
  Serious: Yes (Death, Hospitalization, Other)
  Sender: AUROBINDO
  Company Number: FR-SANDOZ-SDZ2023FR006069

PATIENT
  Age: 73 Year
  Sex: Female

DRUGS (3)
  1. POLYETHYLENE GLYCOL 4000 [Suspect]
     Active Substance: POLYETHYLENE GLYCOL 4000
     Indication: Product used for unknown indication
     Dosage: UNK UNK, ONCE A DAY (6 U QD)
     Route: 045
  2. POLYETHYLENE GLYCOL 4000 [Suspect]
     Active Substance: POLYETHYLENE GLYCOL 4000
     Dosage: UNK UNK, ONCE A DAY (6 U QD)
     Route: 045
  3. CARBOHYDRATES\FATTY ACIDS\MINERALS\PROTEIN\VITAMINS [Concomitant]
     Active Substance: CARBOHYDRATES\FATTY ACIDS\MINERALS\PROTEIN\VITAMINS
     Indication: Product used for unknown indication
     Dosage: UNK ( (VIA NASO GASTRIC TUBE))
     Route: 065

REACTIONS (4)
  - Bezoar [Fatal]
  - Constipation [Fatal]
  - Drug interaction [Fatal]
  - Oesophageal perforation [Fatal]
